FAERS Safety Report 7298674-3 (Version None)
Quarter: 2011Q1

REPORT INFORMATION
  Report Type: 
  Country: None (occurrence: None)
  Receive Date: 20110202
  Receipt Date: 20110128
  Transmission Date: 20110831
  Serious: Yes (Hospitalization)
  Sender: FDA-Public Use
  Company Number: 2011AP000155

PATIENT
  Sex: Male

DRUGS (3)
  1. CLARITHROMYCIN [Suspect]
     Indication: LOWER RESPIRATORY TRACT INFECTION
     Dosage: 500 MG;BID PO
     Route: 048
     Dates: start: 20110107, end: 20110113
  2. AMIODARONE (AMIODARONE) [Suspect]
     Indication: ATRIAL FIBRILLATION
     Dosage: 100 MG;PO
     Route: 048
     Dates: start: 20110106, end: 20110113
  3. TAMIFLU [Suspect]
     Indication: PRODUCT USED FOR UNKNOWN INDICATION
     Dosage: 150 MG;PO;BID
     Route: 048
     Dates: start: 20110111, end: 20110117

REACTIONS (5)
  - GLOMERULAR FILTRATION RATE DECREASED [None]
  - ELECTROCARDIOGRAM QT PROLONGED [None]
  - VENTRICULAR TACHYCARDIA [None]
  - DRUG INTERACTION [None]
  - TORSADE DE POINTES [None]
